FAERS Safety Report 4449403-X (Version None)
Quarter: 2004Q3

REPORT INFORMATION
  Report Type: 
  Country: None (occurrence: None)
  Receive Date: 20040909
  Receipt Date: 20040820
  Transmission Date: 20050211
  Serious: Yes (Other)
  Sender: FDA-Public Use
  Company Number: B0343698A

PATIENT
  Age: 50 Year
  Sex: Female

DRUGS (1)
  1. FORTAZ [Suspect]
     Dosage: INTRAVENOUS
     Route: 042
     Dates: start: 20010301, end: 20010401

REACTIONS (1)
  - CLOSTRIDIUM COLITIS [None]
